FAERS Safety Report 10468519 (Version 2)
Quarter: 2014Q3

REPORT INFORMATION
  Report Type: Spontaneous
  Country: BR (occurrence: BR)
  Receive Date: 20140922
  Receipt Date: 20140925
  Transmission Date: 20150326
  Serious: Yes (Other)
  Sender: FDA-Public Use
  Company Number: PHHY2014BR123238

PATIENT
  Sex: Female

DRUGS (15)
  1. RIVOTRIL [Suspect]
     Active Substance: CLONAZEPAM
  2. OXCARBAZEPINE. [Suspect]
     Active Substance: OXCARBAZEPINE
  3. AMATO [Suspect]
     Active Substance: TOPIRAMATE
  4. LITHIUM [Suspect]
     Active Substance: LITHIUM CARBONATE
  5. HALDOL [Suspect]
     Active Substance: HALOPERIDOL
  6. OLANZAPINE. [Suspect]
     Active Substance: OLANZAPINE
  7. ARIPIPRAZOLE [Suspect]
     Active Substance: ARIPIPRAZOLE
  8. QUETIAPINE [Suspect]
     Active Substance: QUETIAPINE
  9. GEODON [Suspect]
     Active Substance: ZIPRASIDONE HYDROCHLORIDE\ZIPRASIDONE MESYLATE
  10. RISPERIDONE. [Suspect]
     Active Substance: RISPERIDONE
  11. VALPROATE [Suspect]
     Active Substance: VALPROATE SODIUM
  12. NEOZINE//LEVOMEPROMAZINE HYDROCHLORIDE [Suspect]
     Active Substance: LEVOMEPROMAZINE HYDROCHLORIDE
     Dosage: UNK UKN, UNK
  13. CARBAMAZEPINE. [Suspect]
     Active Substance: CARBAMAZEPINE
  14. LAMOTRIGINE. [Suspect]
     Active Substance: LAMOTRIGINE
  15. GABAPENTIN. [Suspect]
     Active Substance: GABAPENTIN

REACTIONS (6)
  - Drug dependence [Recovering/Resolving]
  - Mood altered [Unknown]
  - Hypomania [Unknown]
  - Depression [Unknown]
  - Panic disorder [Unknown]
  - Drug ineffective [Unknown]
